FAERS Safety Report 14899936 (Version 1)
Quarter: 2018Q2

REPORT INFORMATION
  Report Type: Spontaneous
  Country: US (occurrence: US)
  Receive Date: 20180516
  Receipt Date: 20180516
  Transmission Date: 20180711
  Serious: Yes (Death, Hospitalization)
  Sender: FDA-Public Use
  Company Number: US-INSYS THERAPEUTICS, INC-INS201805-000147

PATIENT
  Sex: Male

DRUGS (4)
  1. UNSPECIFIED SLEEPING PILL [Suspect]
     Active Substance: UNSPECIFIED INGREDIENT
     Indication: INSOMNIA
  2. MORPHINE [Concomitant]
     Active Substance: MORPHINE
  3. FENTANYL TRANSDERMAL SYSTEM [Suspect]
     Active Substance: FENTANYL
     Indication: PRODUCT USED FOR UNKNOWN INDICATION
  4. SUBSYS [Suspect]
     Active Substance: FENTANYL
     Indication: BREAKTHROUGH PAIN
     Route: 060

REACTIONS (3)
  - Insomnia [Unknown]
  - Pneumonia aspiration [Fatal]
  - Euphoric mood [Unknown]
